FAERS Safety Report 8613002-6 (Version None)
Quarter: 2012Q3

REPORT INFORMATION
  Report Type: 
  Country: None (occurrence: None)
  Receive Date: 20120822
  Receipt Date: 20120724
  Transmission Date: 20120928
  Serious: Yes (Hospitalization, Disabling, Other)
  Sender: FDA-Public Use
  Company Number: US-009507513-2012SP003425

PATIENT

DRUGS (1)
  1. NUVARING [Suspect]
     Indication: CONTRACEPTION
     Dates: start: 20050923, end: 20100801

REACTIONS (11)
  - VOMITING [None]
  - HYPOKALAEMIA [None]
  - CERVICAL DYSPLASIA [None]
  - DEEP VEIN THROMBOSIS [None]
  - DISTURBANCE IN ATTENTION [None]
  - OEDEMA PERIPHERAL [None]
  - CAROTIDYNIA [None]
  - PANCREATITIS [None]
  - URINARY TRACT INFECTION [None]
  - PULMONARY EMBOLISM [None]
  - SYSTEMIC LUPUS ERYTHEMATOSUS [None]
